FAERS Safety Report 20738932 (Version 1)
Quarter: 2022Q2

REPORT INFORMATION
  Report Type: Spontaneous
  Country: DE (occurrence: DE)
  Receive Date: 20220422
  Receipt Date: 20220422
  Transmission Date: 20220720
  Serious: Yes (Other)
  Sender: FDA-Public Use
  Company Number: DE-JNJFOC-20220304043

PATIENT
  Sex: Female

DRUGS (2)
  1. IMBRUVICA [Interacting]
     Active Substance: IBRUTINIB
     Indication: Leukaemia
     Route: 048
     Dates: start: 201909
  2. IMBRUVICA [Interacting]
     Active Substance: IBRUTINIB
     Route: 048
     Dates: start: 202004

REACTIONS (2)
  - Breast cancer [Unknown]
  - Food interaction [Recovered/Resolved]
